FAERS Safety Report 16815846 (Version 2)
Quarter: 2019Q3

REPORT INFORMATION
  Report Type: Spontaneous
  Country: IT (occurrence: IT)
  Receive Date: 20190917
  Receipt Date: 20190924
  Transmission Date: 20191005
  Serious: No
  Sender: FDA-Public Use
  Company Number: IT-TEVA-2019-IT-1107107

PATIENT
  Age: 82 Year
  Sex: Female

DRUGS (10)
  1. CALCIO LATTOGLUCONATO/CALCIO CARBONATO [Concomitant]
  2. RETACRIT [Concomitant]
     Active Substance: EPOETIN ALFA-EPBX
  3. MAALOX ANTACID [Concomitant]
     Active Substance: ALUMINUM HYDROXIDE\DIMETHICONE\MAGNESIUM HYDROXIDE
  4. HUMALOG [Concomitant]
     Active Substance: INSULIN LISPRO
  5. LORAZEPAM. [Suspect]
     Active Substance: LORAZEPAM
     Indication: INSOMNIA
     Dosage: 1 MILLIGRAM
     Route: 048
     Dates: start: 20190716, end: 20190726
  6. NORVASC [Concomitant]
     Active Substance: AMLODIPINE BESYLATE
  7. CALCITRIOL. [Concomitant]
     Active Substance: CALCITRIOL
  8. LANTUS [Concomitant]
     Active Substance: INSULIN GLARGINE
  9. CONGESCOR [Concomitant]
     Active Substance: BISOPROLOL
  10. SEVELAMER [Concomitant]
     Active Substance: SEVELAMER

REACTIONS (3)
  - Confusional state [Recovering/Resolving]
  - Fall [Recovering/Resolving]
  - Disorientation [Recovering/Resolving]

NARRATIVE: CASE EVENT DATE: 20190726
